FAERS Safety Report 15251520 (Version 1)
Quarter: 2018Q3

REPORT INFORMATION
  Report Type: Spontaneous
  Country: US (occurrence: US)
  Receive Date: 20180807
  Receipt Date: 20180807
  Transmission Date: 20181010
  Serious: No
  Sender: FDA-Public Use
  Company Number: US-BIOMARINAP-US-2018-119039

PATIENT
  Age: 25 Year
  Sex: Male
  Weight: 111.11 kg

DRUGS (1)
  1. KUVAN [Suspect]
     Active Substance: SAPROPTERIN DIHYDROCHLORIDE
     Indication: PHENYLKETONURIA
     Dosage: 18 MG/KG, QD
     Route: 048
     Dates: start: 20180430

REACTIONS (2)
  - Pharyngitis streptococcal [Recovered/Resolved]
  - Dehydration [Recovered/Resolved]

NARRATIVE: CASE EVENT DATE: 20180629
